FAERS Safety Report 18666307 (Version 2)
Quarter: 2021Q1

REPORT INFORMATION
  Report Type: Spontaneous
  Country: BG (occurrence: BG)
  Receive Date: 20201226
  Receipt Date: 20210120
  Transmission Date: 20210419
  Serious: Yes (Hospitalization, Other)
  Sender: FDA-Public Use
  Company Number: NVSC2020BG339385

PATIENT
  Age: 58 Year
  Sex: Male

DRUGS (1)
  1. COSENTYX [Suspect]
     Active Substance: SECUKINUMAB
     Indication: PSORIASIS
     Dosage: UNK (PER SCHEMA FOR PLAQUE PSORIASIS)
     Route: 058
     Dates: start: 20200212

REACTIONS (12)
  - Chest pain [Recovering/Resolving]
  - Coronary artery stenosis [Unknown]
  - Left ventricular dysfunction [Not Recovered/Not Resolved]
  - Diastolic dysfunction [Unknown]
  - Mitral valve incompetence [Unknown]
  - Systolic dysfunction [Unknown]
  - Cardiac failure [Recovering/Resolving]
  - Psoriasis [Unknown]
  - Bundle branch block left [Unknown]
  - Hypokinesia [Unknown]
  - Electrocardiogram repolarisation abnormality [Unknown]
  - Left ventricular enlargement [Unknown]

NARRATIVE: CASE EVENT DATE: 202012
